FAERS Safety Report 5320148-7 (Version None)
Quarter: 2007Q1

REPORT INFORMATION
  Report Type: 
  Country: None (occurrence: None)
  Receive Date: 20070209
  Receipt Date: 20061207
  Transmission Date: 20070707
  Serious: No
  Sender: FDA-Public Use
  Company Number: 200617810US

PATIENT
  Age: 53 Year
  Sex: Male

DRUGS (11)
  1. APIDRA [Suspect]
     Indication: DIABETES MELLITUS NON-INSULIN-DEPENDENT
     Dosage: 73.4 U QD INJ
     Route: 042
  2. TRENTAL [Concomitant]
  3. PIOGLITAZONE [Concomitant]
  4. TOPROL-XL [Concomitant]
  5. PRAVASTATIN SODIUM (PRAVACHOL) [Concomitant]
  6. METOCLOPRAMIDE (REGLAN /00041901/) [Concomitant]
  7. OXYCODONE HYDROCHLORIDE (OXYCONTIN) [Concomitant]
  8. DULOXETINE HYDROCHLORIDE (CYMBALTA) [Concomitant]
  9. BACLOFEN [Concomitant]
  10. ZANTAC [Concomitant]
  11. ACTONEL [Concomitant]

REACTIONS (1)
  - STOMACH DISCOMFORT [None]
